FAERS Safety Report 12328186 (Version 1)
Quarter: 2016Q2

REPORT INFORMATION
  Report Type: Spontaneous
  Country: US (occurrence: US)
  Receive Date: 20160503
  Receipt Date: 20160503
  Transmission Date: 20160815
  Serious: No
  Sender: FDA-Public Use
  Company Number: US-PERRIGO-15US012420

PATIENT
  Age: 57 Year
  Sex: Male
  Weight: 86.17 kg

DRUGS (1)
  1. NAPROXEN SODIUM-PSEUDOEPHEDRINE HYDROCHLORIDE [Suspect]
     Active Substance: NAPROXEN SODIUM\PSEUDOEPHEDRINE HYDROCHLORIDE
     Indication: HEADACHE
     Dosage: ONE TABLET, PRN
     Route: 048
     Dates: start: 2011

REACTIONS (1)
  - Drug effect decreased [Unknown]

NARRATIVE: CASE EVENT DATE: 201511
